FAERS Safety Report 25720514 (Version 3)
Quarter: 2025Q3

REPORT INFORMATION
  Report Type: Spontaneous
  Country: US (occurrence: US)
  Receive Date: 20250825
  Receipt Date: 20250918
  Transmission Date: 20251021
  Serious: Yes (Death, Hospitalization, Other)
  Sender: SANOFI AVENTIS
  Company Number: US-SA-2025SA084563

PATIENT
  Age: 77 Year
  Sex: Male

DRUGS (16)
  1. DUPIXENT [Suspect]
     Active Substance: DUPILUMAB
     Indication: Asthma
     Dosage: 300 MG, QOW
     Route: 065
     Dates: end: 202507
  2. PREDNISONE [Concomitant]
     Active Substance: PREDNISONE
  3. ONDANSETRON [Concomitant]
     Active Substance: ONDANSETRON
  4. SIMVASTATIN [Concomitant]
     Active Substance: SIMVASTATIN
  5. TRELEGY ELLIPTA [Concomitant]
     Active Substance: FLUTICASONE FUROATE\UMECLIDINIUM BROMIDE\VILANTEROL TRIFENATATE
     Dosage: 62.5-25 MCG; TAKE 1 INHALATION BY INHALATION ONCE A DAY - INHALATION
     Route: 055
     Dates: start: 20250117
  6. DEXAMETHASONE SODIUM PHOSPHATE [Concomitant]
     Active Substance: DEXAMETHASONE SODIUM PHOSPHATE
  7. AREXVY [Concomitant]
     Active Substance: RECOMBINANT RESPIRATORY SYNCYTIAL VIRUS PRE-FUSION F PROTEIN ANTIGEN
  8. MONTELUKAST [Concomitant]
     Active Substance: MONTELUKAST
  9. AMOXICILLIN [Concomitant]
     Active Substance: AMOXICILLIN
  10. COREG [Concomitant]
     Active Substance: CARVEDILOL
     Dosage: 3.125 MG, BID
     Route: 048
     Dates: start: 20250505
  11. ECOTRIN [Concomitant]
     Active Substance: ASPIRIN
     Dosage: 81 MG, QD
     Route: 048
     Dates: start: 20250505
  12. CRESTOR [Concomitant]
     Active Substance: ROSUVASTATIN CALCIUM
     Dosage: 10 MG, QD
     Route: 048
     Dates: start: 20250505
  13. ASCORBIC ACID\BIOTIN\CALCIUM PANTOTHENATE\CYANOCOBALAMIN\FOLIC ACID\NI [Concomitant]
     Active Substance: ASCORBIC ACID\BIOTIN\CALCIUM PANTOTHENATE\CYANOCOBALAMIN\FOLIC ACID\NIACINAMIDE\PYRIDOXINE HYDROCHLO
     Dosage: 1 DF, QD
     Route: 048
  14. ALLEGRA [Concomitant]
     Active Substance: FEXOFENADINE HYDROCHLORIDE
     Dosage: 60 MG, QD
     Route: 048
  15. OXYCODONE HYDROCHLORIDE [Concomitant]
     Active Substance: OXYCODONE HYDROCHLORIDE
     Indication: Pain
     Dosage: 5 MG, Q6H AS NEEDED
     Route: 048
  16. NIZORAL [Concomitant]
     Active Substance: KETOCONAZOLE
     Route: 061

REACTIONS (18)
  - Transitional cell carcinoma metastatic [Fatal]
  - Dyspnoea [Unknown]
  - Heart failure with reduced ejection fraction [Unknown]
  - Myocardial injury [Unknown]
  - Anaemia [Unknown]
  - Adult failure to thrive [Unknown]
  - Ischaemic cardiomyopathy [Unknown]
  - Hyperkalaemia [Unknown]
  - Bacteraemia [Unknown]
  - Gastrostomy [Unknown]
  - Decreased appetite [Unknown]
  - Dysphagia [Unknown]
  - Asthenia [Unknown]
  - Pain [Unknown]
  - Coronary artery disease [Unknown]
  - Dehydration [Unknown]
  - Malnutrition [Unknown]
  - Haemorrhage [Unknown]

NARRATIVE: CASE EVENT DATE: 20250101
